FAERS Safety Report 6558078-5 (Version None)
Quarter: 2010Q1

REPORT INFORMATION
  Report Type: 
  Country: None (occurrence: None)
  Receive Date: 20100127
  Receipt Date: 20100127
  Transmission Date: 20100710
  Serious: Yes (Hospitalization)
  Sender: FDA-Public Use
  Company Number: None

PATIENT
  Age: 82 Year
  Sex: Male
  Weight: 7045 kg

DRUGS (9)
  1. COUMADIN [Suspect]
     Dosage: 7.5MG TH PO
     Route: 048
  2. COUMADIN [Suspect]
     Dosage: 5 MG FSSMTUW PO
     Route: 048
  3. SULAR [Concomitant]
  4. DIOVAN [Concomitant]
  5. FOSAMAX [Concomitant]
  6. M.V.I. [Concomitant]
  7. POTASSIUM [Concomitant]
  8. VITD [Concomitant]
  9. AMIODARONE HCL [Concomitant]

REACTIONS (5)
  - BRAIN MIDLINE SHIFT [None]
  - HEMIPARESIS [None]
  - INTRACRANIAL PRESSURE INCREASED [None]
  - MUSCULAR WEAKNESS [None]
  - SUBDURAL HAEMATOMA [None]
